FAERS Safety Report 8918841 (Version 1)
Quarter: 2012Q4

REPORT INFORMATION
  Report Type: Spontaneous
  Country: US (occurrence: None)
  Receive Date: 20121115
  Receipt Date: 20121115
  Transmission Date: 20130627
  Serious: Yes (Life-Threatening, Hospitalization)
  Sender: FDA-Public Use
  Company Number: None

PATIENT
  Age: 17 Year
  Sex: Female
  Weight: 79 kg

DRUGS (2)
  1. CLINDAMYCIN [Suspect]
     Dates: start: 20120902, end: 20120904
  2. TRAMADOL [Suspect]

REACTIONS (6)
  - Lip blister [None]
  - Tongue blistering [None]
  - Lip swelling [None]
  - Swollen tongue [None]
  - Odynophagia [None]
  - Pain [None]
